FAERS Safety Report 5778690-0 (Version None)
Quarter: 2008Q2

REPORT INFORMATION
  Report Type: 
  Country: None (occurrence: None)
  Receive Date: 20080619
  Receipt Date: 20080617
  Transmission Date: 20081010
  Serious: Yes (Other)
  Sender: FDA-Public Use
  Company Number: D0057727A

PATIENT
  Age: 7 Year
  Sex: Male

DRUGS (1)
  1. LAMICTAL [Suspect]
     Route: 048
     Dates: start: 20030101

REACTIONS (1)
  - TOOTH MALFORMATION [None]
